FAERS Safety Report 10025179 (Version 1)
Quarter: 2014Q1

REPORT INFORMATION
  Report Type: Spontaneous
  Country: FI (occurrence: FI)
  Receive Date: 20140320
  Receipt Date: 20140320
  Transmission Date: 20141002
  Serious: Yes (Other)
  Sender: FDA-Public Use
  Company Number: FI-ROCHE-1368787

PATIENT
  Sex: Male

DRUGS (3)
  1. XOLAIR [Suspect]
     Indication: ASTHMA
     Route: 058
     Dates: start: 2014
  2. XOLAIR [Suspect]
     Route: 065
  3. XOLAIR [Suspect]
     Dosage: 75 MG EACH TWICE SECOND DOSE ONE HOUR AFTER THE FIRST DOSE
     Route: 058

REACTIONS (3)
  - Syncope [Recovered/Resolved]
  - Hyperventilation [Recovered/Resolved]
  - Muscular weakness [Recovered/Resolved]
